FAERS Safety Report 15425480 (Version 1)
Quarter: 2018Q3

REPORT INFORMATION
  Report Type: Spontaneous
  Country: US (occurrence: US)
  Receive Date: 20180925
  Receipt Date: 20180925
  Transmission Date: 20181010
  Serious: No
  Sender: FDA-Public Use
  Company Number: US-TAKEDA-2018TUS027900

PATIENT
  Sex: Female

DRUGS (2)
  1. ENTYVIO [Suspect]
     Active Substance: VEDOLIZUMAB
     Indication: COLITIS ULCERATIVE
     Dosage: UNK
     Route: 065
     Dates: start: 201803, end: 201807
  2. AZATHIOPRINE                       /00001502/ [Concomitant]
     Active Substance: AZATHIOPRINE
     Dosage: UNK
     Dates: start: 201711, end: 201807

REACTIONS (1)
  - Drug ineffective [Unknown]
